FAERS Safety Report 21662167 (Version 1)
Quarter: 2022Q4

REPORT INFORMATION
  Report Type: Spontaneous
  Country: US (occurrence: US)
  Receive Date: 20221130
  Receipt Date: 20221130
  Transmission Date: 20230113
  Serious: No
  Sender: FDA-Public Use
  Company Number: US-SANOFI-01347899

PATIENT
  Age: 99 Year
  Sex: Female

DRUGS (1)
  1. CHILDREN^S ALLEGRA ALLERGY [Suspect]
     Active Substance: FEXOFENADINE HYDROCHLORIDE
     Indication: Urticaria
     Dosage: 30 MG, QD
     Route: 048

REACTIONS (2)
  - Product leakage [Unknown]
  - Urticaria [Unknown]
